FAERS Safety Report 7405625-7 (Version None)
Quarter: 2011Q2

REPORT INFORMATION
  Report Type: 
  Country: None (occurrence: None)
  Receive Date: 20110411
  Receipt Date: 20110331
  Transmission Date: 20111010
  Serious: Yes (Hospitalization)
  Sender: FDA-Public Use
  Company Number: AU-SHIRE-SPV1-2011-00535

PATIENT
  Age: 66 Year
  Sex: Female

DRUGS (1)
  1. LANTHANUM CARBONATE [Suspect]
     Indication: HYPERPHOSPHATAEMIA
     Dosage: 750 MG, 3X/DAY:TID
     Route: 048

REACTIONS (4)
  - CONSTIPATION [None]
  - X-RAY ABNORMAL [None]
  - ABDOMINAL PAIN [None]
  - OSTEOMYELITIS [None]
